FAERS Safety Report 6213353-9 (Version None)
Quarter: 2009Q2

REPORT INFORMATION
  Report Type: 
  Country: None (occurrence: None)
  Receive Date: 20090601
  Receipt Date: 20090601
  Transmission Date: 20091009
  Serious: No
  Sender: FDA-Public Use
  Company Number: None

PATIENT
  Sex: Female
  Weight: 88.4514 kg

DRUGS (1)
  1. BUPROPION HCL XL TABS 300MG ANCHEN [Suspect]
     Indication: DEPRESSION
     Dates: start: 20090417, end: 20090505

REACTIONS (3)
  - ANGER [None]
  - DEPRESSION [None]
  - PRODUCT SUBSTITUTION ISSUE [None]
